FAERS Safety Report 8059005-4 (Version None)
Quarter: 2012Q1

REPORT INFORMATION
  Report Type: 
  Country: None (occurrence: None)
  Receive Date: 20120120
  Receipt Date: 20110223
  Transmission Date: 20120608
  Serious: No
  Sender: FDA-Public Use
  Company Number: US-BAUSCH-2011BL001210

PATIENT
  Sex: Female

DRUGS (3)
  1. SYSTANE [Concomitant]
     Indication: DRY EYE
     Route: 047
     Dates: start: 20110223
  2. ALAWAY [Suspect]
     Indication: EYE ALLERGY
     Route: 047
     Dates: start: 20110123
  3. GENTEAL SEVERE LUBRICANT EYE GEL [Concomitant]
     Indication: DRY EYE
     Route: 047

REACTIONS (3)
  - EYE PRURITUS [None]
  - EYE INFLAMMATION [None]
  - EYELID DISORDER [None]
